FAERS Safety Report 24852890 (Version 1)
Quarter: 2025Q1

REPORT INFORMATION
  Report Type: Spontaneous
  Country: US (occurrence: None)
  Receive Date: 20250115
  Receipt Date: 20250115
  Transmission Date: 20250408
  Serious: Yes (Disabling)
  Sender: FDA-CTU
  Company Number: None

PATIENT
  Age: 48 Year
  Sex: Female
  Weight: 56.7 kg

DRUGS (1)
  1. VEOZAH [Suspect]
     Active Substance: FEZOLINETANT
     Indication: Hot flush
     Dosage: FREQUENCY : DAILY;?
     Route: 048

REACTIONS (2)
  - Weight increased [None]
  - Tooth fracture [None]

NARRATIVE: CASE EVENT DATE: 20211101
